FAERS Safety Report 13167412 (Version 2)
Quarter: 2017Q1

REPORT INFORMATION
  Report Type: Spontaneous
  Country: DE (occurrence: DE)
  Receive Date: 20170131
  Receipt Date: 20170302
  Transmission Date: 20170428
  Serious: Yes (Disabling, Other)
  Sender: FDA-Public Use
  Company Number: DE-GLAXOSMITHKLINE-DE2016GSK192255

PATIENT
  Age: 17 Year
  Sex: Female
  Weight: 62 kg

DRUGS (1)
  1. SCOPODERM TTS [Suspect]
     Active Substance: SCOPOLAMINE
     Indication: MOTION SICKNESS
     Dosage: 1 DF, Z
     Route: 062
     Dates: start: 20161109, end: 20161112

REACTIONS (5)
  - Epistaxis [Recovered/Resolved]
  - Dizziness [Recovered/Resolved]
  - Glaucoma [Unknown]
  - Accommodation disorder [Recovered/Resolved with Sequelae]
  - Dry mouth [Recovered/Resolved]

NARRATIVE: CASE EVENT DATE: 20161109
